FAERS Safety Report 5493856-5 (Version None)
Quarter: 2007Q4

REPORT INFORMATION
  Report Type: 
  Country: None (occurrence: None)
  Receive Date: 20071019
  Receipt Date: 20071005
  Transmission Date: 20080405
  Serious: Yes (Other)
  Sender: FDA-Public Use
  Company Number: US-1164312

PATIENT
  Sex: Female

DRUGS (2)
  1. TROPICAMIDE [Suspect]
     Dosage: OPHTHALMIC
     Route: 047
     Dates: start: 19991123, end: 19991123
  2. PHENYLEPHRINE SOLUTION [Suspect]
     Dosage: OPHTHALMIC
     Route: 047
     Dates: start: 19991123, end: 19991123

REACTIONS (1)
  - ANAPHYLACTIC SHOCK [None]
